FAERS Safety Report 8607307-2 (Version None)
Quarter: 2012Q3

REPORT INFORMATION
  Report Type: 
  Country: None (occurrence: None)
  Receive Date: 20120807
  Receipt Date: 20120725
  Transmission Date: 20120928
  Serious: Yes (Other)
  Sender: FDA-Public Use
  Company Number: 2012AP002285

PATIENT
  Age: 3 Year
  Sex: Male

DRUGS (7)
  1. LEVOFLOXACIN [Suspect]
     Indication: DISSEMINATED TUBERCULOSIS
  2. LEVOFLOXACIN [Suspect]
     Indication: OFF LABEL USE
  3. METHYLPREDNISOLONE [Concomitant]
  4. ISONIAZID [Suspect]
     Indication: DISSEMINATED TUBERCULOSIS
  5. ETHAMBUTOL HYDROCHLORIDE [Concomitant]
  6. TACROLIMUS [Concomitant]
  7. PYRAZINAMIDE [Concomitant]

REACTIONS (3)
  - HEPATITIS [None]
  - OFF LABEL USE [None]
  - ARTHRALGIA [None]
